FAERS Safety Report 9288120 (Version 1)
Quarter: 2013Q2

REPORT INFORMATION
  Report Type: Spontaneous
  Country: JP (occurrence: None)
  Receive Date: 20130510
  Receipt Date: 20130510
  Transmission Date: 20140414
  Serious: Yes (Death, Other)
  Sender: FDA-Public Use
  Company Number: SYM-2013-03424

PATIENT
  Age: 63 Year
  Sex: Male

DRUGS (3)
  1. FLUOROURACIL (FLUOROURACIL) (FLUOROURACIL) [Suspect]
     Indication: COLORECTAL CANCER
  2. OXALIPLATIN [Suspect]
     Indication: COLORECTAL CANCER
  3. LEUCOVORIN [Suspect]
     Indication: COLORECTAL CANCER

REACTIONS (5)
  - Anorectal infection [None]
  - Platelet count decreased [None]
  - Haemorrhage [None]
  - White blood cell count decreased [None]
  - Colorectal cancer [None]
